FAERS Safety Report 7417187-9 (Version None)
Quarter: 2011Q2

REPORT INFORMATION
  Report Type: 
  Country: None (occurrence: None)
  Receive Date: 20110415
  Receipt Date: 20110404
  Transmission Date: 20111010
  Serious: Yes (Other)
  Sender: FDA-Public Use
  Company Number: US-JNJFOC-20110403762

PATIENT
  Sex: Male
  Weight: 74.84 kg

DRUGS (7)
  1. OXYCODONE [Concomitant]
     Indication: BREAKTHROUGH PAIN
     Dosage: NOT TO EXCEED 4 PER DAY
     Route: 048
  2. PAXIL CR [Concomitant]
     Indication: DEPRESSION
     Dosage: AT BED TIME
     Route: 048
  3. FENTANYL-100 [Suspect]
     Route: 062
  4. FENTANYL CITRATE [Suspect]
     Route: 062
  5. FENTANYL-100 [Suspect]
     Indication: BACK PAIN
     Route: 062
  6. FENTANYL CITRATE [Suspect]
     Indication: BACK PAIN
     Route: 062
  7. DURAGESIC [Suspect]
     Indication: BACK PAIN
     Route: 062

REACTIONS (9)
  - DRUG INEFFECTIVE [None]
  - INFLUENZA LIKE ILLNESS [None]
  - DISTURBANCE IN ATTENTION [None]
  - WITHDRAWAL SYNDROME [None]
  - ACTIVITIES OF DAILY LIVING IMPAIRED [None]
  - INSOMNIA [None]
  - MALAISE [None]
  - PAIN [None]
  - HOMICIDAL IDEATION [None]
